FAERS Safety Report 22679097 (Version 2)
Quarter: 2024Q3

REPORT INFORMATION
  Report Type: Spontaneous
  Country: US (occurrence: US)
  Receive Date: 20230706
  Receipt Date: 20240710
  Transmission Date: 20241017
  Serious: No
  Sender: ROCHE
  Company Number: US-ROCHE-3321690

PATIENT
  Sex: Male

DRUGS (1)
  1. ROZLYTREK [Suspect]
     Active Substance: ENTRECTINIB
     Indication: Brain neoplasm malignant
     Route: 048
     Dates: start: 202208

REACTIONS (3)
  - Heart rate decreased [Unknown]
  - Off label use [Unknown]
  - Cardiomyopathy [Unknown]
